FAERS Safety Report 6156305-X (Version None)
Quarter: 2009Q2

REPORT INFORMATION
  Report Type: 
  Country: None (occurrence: None)
  Receive Date: 20090413
  Receipt Date: 20090331
  Transmission Date: 20091009
  Serious: Yes (Hospitalization)
  Sender: FDA-Public Use
  Company Number: 231446K09USA

PATIENT
  Age: 56 Year
  Sex: Female
  Weight: 127 kg

DRUGS (1)
  1. REBIF [Suspect]
     Indication: MULTIPLE SCLEROSIS
     Dosage: 8.8 MCG, 3 IN 1 WEEKS, SUBCUTANEOUS
     Route: 058
     Dates: start: 20090121

REACTIONS (8)
  - ANAEMIA [None]
  - COLITIS [None]
  - DEHYDRATION [None]
  - FLUID RETENTION [None]
  - HYPOAESTHESIA [None]
  - HYPOTENSION [None]
  - PAIN IN EXTREMITY [None]
  - RENAL FAILURE ACUTE [None]
